FAERS Safety Report 7620057-4 (Version None)
Quarter: 2011Q3

REPORT INFORMATION
  Report Type: 
  Country: None (occurrence: None)
  Receive Date: 20110719
  Receipt Date: 20110714
  Transmission Date: 20111222
  Serious: Yes (Other)
  Sender: FDA-Public Use
  Company Number: US-PFIZER INC-2006096099

PATIENT
  Sex: Male
  Weight: 81.633 kg

DRUGS (5)
  1. LITHIUM CARBONATE [Suspect]
     Indication: BIPOLAR DISORDER
     Route: 065
     Dates: start: 19850101, end: 20050101
  2. NARDIL [Suspect]
     Indication: BIPOLAR DISORDER
     Dosage: 15 MG, 3X/DAY
     Route: 065
     Dates: start: 19850101
  3. LAMICTAL [Suspect]
     Indication: BIPOLAR DISORDER
     Route: 065
     Dates: start: 20050701, end: 20060101
  4. SELEGILINE [Concomitant]
     Route: 065
     Dates: start: 20060101, end: 20060701
  5. SYNTHROID [Concomitant]
     Indication: THYROID DISORDER
     Dosage: 50 UG, DAILY

REACTIONS (1)
  - GLAUCOMA [None]
